FAERS Safety Report 19414281 (Version 1)
Quarter: 2021Q2

REPORT INFORMATION
  Report Type: Spontaneous
  Country: DE (occurrence: DE)
  Receive Date: 20210614
  Receipt Date: 20210614
  Transmission Date: 20210717
  Serious: Yes (Death, Other)
  Sender: FDA-Public Use
  Company Number: DE-AMGEN-DEUSP2021089062

PATIENT

DRUGS (8)
  1. VANDETANIB. [Concomitant]
     Active Substance: VANDETANIB
     Indication: MEDULLARY THYROID CANCER
     Dosage: UNK
  2. CABOZANTINIB [Concomitant]
     Active Substance: CABOZANTINIB
     Indication: MEDULLARY THYROID CANCER
     Dosage: UNK
  3. NINTEDANIB [Concomitant]
     Active Substance: NINTEDANIB
     Indication: MEDULLARY THYROID CANCER
     Dosage: UNK
  4. PAZOPANIB [Concomitant]
     Active Substance: PAZOPANIB
  5. XGEVA [Suspect]
     Active Substance: DENOSUMAB
     Indication: METASTASES TO BONE
     Dosage: UNK
     Route: 065
  6. SORAFENIB [Concomitant]
     Active Substance: SORAFENIB
     Dosage: UNK
  7. SUNITINIB [Concomitant]
     Active Substance: SUNITINIB
     Indication: MEDULLARY THYROID CANCER
     Dosage: UNK
  8. LENVATINIB [Concomitant]
     Active Substance: LENVATINIB
     Indication: MEDULLARY THYROID CANCER
     Dosage: UNK

REACTIONS (1)
  - Death [Fatal]
